FAERS Safety Report 9199144 (Version 3)
Quarter: 2013Q2

REPORT INFORMATION
  Report Type: Spontaneous
  Country: US (occurrence: None)
  Receive Date: 20130325
  Receipt Date: 20130409
  Transmission Date: 20140414
  Serious: No
  Sender: FDA-Public Use
  Company Number: 2013US-004534

PATIENT
  Age: 61 Year
  Sex: Female
  Weight: 69.5 kg

DRUGS (19)
  1. OMONTYS (PEGINESATIDE) SOLUTION FOR INJECTION [Suspect]
     Indication: NEPHROGENIC ANAEMIA
     Route: 042
     Dates: start: 20130118, end: 20130118
  2. BENADRYL (DIPHENHYDRAMINE HYDROCHLORIDE) [Concomitant]
  3. EPOGEN (EPOETIN ALFA) [Concomitant]
  4. XANAX (ALPRAZOLAM) [Concomitant]
  5. LIDOCAINE/PRILOCAINE (LIDOCAINE, PRILOCAINE) [Concomitant]
  6. TYLENOL (PRACETAMOL) [Concomitant]
  7. ATARAX (HYDROXYZINE) [Concomitant]
  8. ZOFRAN (ONDANSETRON) [Concomitant]
  9. COUMADIN (WARFARIN SODIUM) [Concomitant]
  10. TOPAMAX (TOPIRAMATE) [Concomitant]
  11. NEPHROVITE (ASCORBIC ACID, BIOTIN, CALCIUM PANTOTHENATE, CYANOCOBALAMIN, FOLIC ACI, NICOTINAMIDE, PYRIDOXINE HYDROCHLORIDE, RIBOFLAVIN, THIAMINE HYDROCHLORIDE) [Concomitant]
  12. PROTONIX (PANTOPRAZOLE SODIUM SESQUIHYDRATE) [Concomitant]
  13. PEPCID (FAMOTIDINE) [Concomitant]
  14. KLONOPIN (CLONAZEPAM) (TABLETS) [Concomitant]
  15. AMBIEN (ZOLPIDEM TARTRATE) [Concomitant]
  16. ZEMPLAR (PARICALCITOL) [Concomitant]
  17. HEPARIN (HEPARIN) [Concomitant]
  18. ACETAMINOPHEN (PARACETAMOL) [Concomitant]
  19. VENOFER [Concomitant]

REACTIONS (1)
  - Hypersensitivity [None]
